FAERS Safety Report 7901906-9 (Version None)
Quarter: 2011Q4

REPORT INFORMATION
  Report Type: 
  Country: None (occurrence: None)
  Receive Date: 20111107
  Receipt Date: 20111107
  Transmission Date: 20120403
  Serious: Yes (Hospitalization)
  Sender: FDA-Public Use
  Company Number: None

PATIENT
  Sex: Male
  Weight: 26.2 kg

DRUGS (15)
  1. DEXAMETHASONE SODIUM PHOSPHATE [Suspect]
     Dosage: 2.8 MG
  2. LASIX [Concomitant]
  3. ZOFRAN [Concomitant]
  4. ACETAMINOPHEN [Concomitant]
  5. TRIMETHOPRIM + SULFAMETHOXAZOLE [Concomitant]
  6. ONCASPAR [Suspect]
     Dosage: 2325 UNIT
  7. DIPHENHYDRAMINE (BENADRYL) [Concomitant]
  8. HEPARIN [Concomitant]
  9. DEXAMETHASONE [Suspect]
     Dosage: 57.75 MG
  10. RANITIDINE (ZANTAC) [Concomitant]
  11. CYTARABINE [Suspect]
     Dosage: 70 MG
  12. HYDROCODONE-ACETAMINOPHEN (LORTAB) [Concomitant]
  13. ALLOPURINOL [Concomitant]
  14. DOCUSATE SODIUM (COLACE) [Concomitant]
  15. OXYCODONE (ROXICODONE) [Concomitant]

REACTIONS (13)
  - PALLOR [None]
  - ABDOMINAL DISTENSION [None]
  - SEPSIS [None]
  - ABDOMINAL PAIN LOWER [None]
  - TACHYCARDIA [None]
  - CONSTIPATION [None]
  - SHOCK [None]
  - COAGULOPATHY [None]
  - RENAL IMPAIRMENT [None]
  - MALAISE [None]
  - NEUTROPENIA [None]
  - COLECTOMY [None]
  - CONDITION AGGRAVATED [None]
